FAERS Safety Report 9738710 (Version 4)
Quarter: 2013Q4

REPORT INFORMATION
  Report Type: Report from Study
  Country: CA (occurrence: CA)
  Receive Date: 20131209
  Receipt Date: 20131224
  Transmission Date: 20140711
  Serious: Yes (Other)
  Sender: FDA-Public Use
  Company Number: CA-ROCHE-1222633

PATIENT
  Age: 53 Year
  Sex: Female
  Weight: 86 kg

DRUGS (9)
  1. RITUXAN [Suspect]
     Indication: RHEUMATOID ARTHRITIS
     Route: 042
     Dates: start: 20130422
  2. BENADRYL (CANADA) [Concomitant]
     Indication: PREMEDICATION
     Route: 048
     Dates: start: 20130422
  3. TYLENOL [Concomitant]
     Indication: PREMEDICATION
     Route: 048
     Dates: start: 20130422
  4. SOLU-MEDROL [Concomitant]
     Indication: PREMEDICATION
     Route: 042
     Dates: start: 20130422
  5. PLAQUENIL [Concomitant]
  6. METHOTREXATE [Concomitant]
  7. ARTHROTEC FORTE [Concomitant]
  8. IMOVANE [Concomitant]
  9. VITAMIN B12 [Concomitant]

REACTIONS (8)
  - Mouth cyst [Recovered/Resolved]
  - Erythema [Recovered/Resolved]
  - Body temperature increased [Recovered/Resolved]
  - Nasopharyngitis [Not Recovered/Not Resolved]
  - Hypersensitivity [Recovered/Resolved]
  - Sinus disorder [Recovered/Resolved]
  - Hypotension [Not Recovered/Not Resolved]
  - Pyrexia [Recovered/Resolved]
